FAERS Safety Report 12981008 (Version 2)
Quarter: 2017Q1

REPORT INFORMATION
  Report Type: Spontaneous
  Country: US (occurrence: US)
  Receive Date: 20161128
  Receipt Date: 20170308
  Transmission Date: 20170428
  Serious: No
  Sender: FDA-Public Use
  Company Number: US-TEIKOKU PHARMA USA-TPU2016-00800

PATIENT
  Sex: Female
  Weight: 70.37 kg

DRUGS (2)
  1. ASPERCREME NOS [Concomitant]
     Active Substance: MENTHOL\TROLAMINE SALICYLATE
     Indication: MUSCULOSKELETAL PAIN
     Route: 061
     Dates: start: 201609
  2. LIDOCAINE PATCH [Suspect]
     Active Substance: LIDOCAINE
     Indication: MUSCULOSKELETAL PAIN
     Route: 061
     Dates: start: 20160801

REACTIONS (2)
  - Visual impairment [Not Recovered/Not Resolved]
  - Intervertebral disc protrusion [Not Recovered/Not Resolved]
